FAERS Safety Report 6530327-9 (Version None)
Quarter: 2010Q1

REPORT INFORMATION
  Report Type: 
  Country: None (occurrence: None)
  Receive Date: 20100107
  Receipt Date: 20091229
  Transmission Date: 20100710
  Serious: Yes (Other)
  Sender: FDA-Public Use
  Company Number: US-ABBOTT-09P-163-0616998-00

PATIENT
  Sex: Female
  Weight: 68.1 kg

DRUGS (3)
  1. AZMACORT [Suspect]
     Indication: ASTHMA
     Dosage: AND  PRN
     Dates: start: 19890101
  2. ZETIA [Concomitant]
     Indication: BLOOD CHOLESTEROL INCREASED
  3. CRESTOR [Concomitant]
     Indication: BLOOD CHOLESTEROL INCREASED
     Dosage: SAMPLES

REACTIONS (2)
  - MACULAR DEGENERATION [None]
  - PARAESTHESIA [None]
